FAERS Safety Report 17335323 (Version 1)
Quarter: 2020Q1

REPORT INFORMATION
  Report Type: Spontaneous
  Country: FR (occurrence: FR)
  Receive Date: 20200128
  Receipt Date: 20200128
  Transmission Date: 20200409
  Serious: Yes (Death)
  Sender: FDA-Public Use
  Company Number: FR-AUROBINDO-AUR-APL-2020-004181

PATIENT
  Age: 62 Year
  Sex: Female
  Weight: 69.6 kg

DRUGS (3)
  1. METFORMINE ARROW [Concomitant]
     Active Substance: METFORMIN HYDROCHLORIDE
     Indication: TYPE 2 DIABETES MELLITUS
     Dosage: 2550 MILLIGRAM, ONCE A DAY
     Route: 048
     Dates: start: 2002
  2. LYRICA [Suspect]
     Active Substance: PREGABALIN
     Indication: NEURALGIA
     Dosage: 150 MILLIGRAM, ONCE A DAY
     Route: 048
     Dates: start: 201910
  3. QUETIAPINE ARROW LP 50 MG PROLONGED RELEASE TABLET [Suspect]
     Active Substance: QUETIAPINE
     Indication: HALLUCINATION
     Dosage: 200 MILLIGRAM, ONCE A DAY
     Route: 048
     Dates: start: 20190923

REACTIONS (1)
  - Hypoglycaemia [Fatal]

NARRATIVE: CASE EVENT DATE: 20200103
